FAERS Safety Report 8486847-3 (Version None)
Quarter: 2012Q3

REPORT INFORMATION
  Report Type: 
  Country: None (occurrence: None)
  Receive Date: 20120704
  Receipt Date: 20120627
  Transmission Date: 20120928
  Serious: Yes (Death)
  Sender: FDA-Public Use
  Company Number: BR-AMGEN-BRASP2012040686

PATIENT
  Age: 55 Year
  Sex: Male

DRUGS (5)
  1. CINACALCET HYDROCHLORIDE [Suspect]
     Indication: THYROID DISORDER
     Dosage: UNK
     Route: 048
     Dates: start: 20111230
  2. EPOGEN [Concomitant]
     Dosage: 12 MONTHLY
  3. FOLIC ACID [Concomitant]
  4. RENAGEL [Concomitant]
     Indication: BLOOD PHOSPHORUS ABNORMAL
     Dosage: UNK, TID
     Route: 048
  5. VITAMIN B COMPLEX                  /00003501/ [Concomitant]
     Indication: ASTHENIA
     Dosage: UNK, 3 TIMES/WK
     Route: 048

REACTIONS (1)
  - PNEUMONIA [None]
